FAERS Safety Report 5533101-5 (Version None)
Quarter: 2007Q4

REPORT INFORMATION
  Report Type: 
  Country: None (occurrence: None)
  Receive Date: 20071120
  Receipt Date: 20070731
  Transmission Date: 20080405
  Serious: No
  Sender: FDA-Public Use
  Company Number: WAES 0706USA01216

PATIENT
  Age: 68 Year
  Sex: Male
  Weight: 92.9874 kg

DRUGS (2)
  1. JANUVIA [Suspect]
     Dosage: PO ; 50 MG/DAILY/PO
     Route: 048
     Dates: start: 20061001
  2. LASIX [Concomitant]

REACTIONS (1)
  - BLOOD UREA INCREASED [None]
